FAERS Safety Report 16437689 (Version 1)
Quarter: 2019Q2

REPORT INFORMATION
  Report Type: Report from Study
  Country: NL (occurrence: NL)
  Receive Date: 20190616
  Receipt Date: 20190616
  Transmission Date: 20190711
  Serious: Yes (Hospitalization, Other)
  Sender: FDA-Public Use
  Company Number: NL-AMGEN-NLDSL2019075416

PATIENT
  Age: 63 Year
  Sex: Male

DRUGS (24)
  1. SOLIFENACINE [Concomitant]
     Dosage: 5 MILLIGRAM, 1D1T
  2. MORFINE [Concomitant]
     Active Substance: MORPHINE
     Dosage: 10 MILLIGRAM PER MILLILITRE
  3. CALCIUM CARBONATE W/COLECALCIFEROL [Concomitant]
     Active Substance: CALCIUM CARBONATE\CHOLECALCIFEROL
     Dosage: 1.25G/880IE, 1D1S
  4. DEXAMETHASON [DEXAMETHASONE] [Concomitant]
     Active Substance: DEXAMETHASONE
     Dosage: 1.5 MILLIGRAM, 1D1
  5. OXYCODON [Concomitant]
     Active Substance: OXYCODONE
     Dosage: 20 MILLIGRAM
  6. MACROGOL EN ELEKTROLYTEN [Concomitant]
     Dosage: UNK, 1D1S
  7. FLUCLOXACILLINE [FLUCLOXACILLIN] [Concomitant]
     Dosage: 500 MILLIGRAM, 4D1C
  8. ARANESP [Suspect]
     Active Substance: DARBEPOETIN ALFA
     Indication: PRODUCT USED FOR UNKNOWN INDICATION
     Dosage: 130UG=0,65ML(200UG/ML)
     Route: 065
  9. FENTANYL [FENTANYL CITRATE] [Concomitant]
     Active Substance: FENTANYL CITRATE
     Dosage: 50 UG/HR
  10. PANTOPRAZOL [PANTOPRAZOLE] [Concomitant]
     Active Substance: PANTOPRAZOLE
     Dosage: 20 MILLIGRAM
  11. PREGABALINE [Concomitant]
     Active Substance: PREGABALIN
     Dosage: 75 MILLIGRAM
  12. TAMSULOSINE [TAMSULOSIN] [Concomitant]
     Dosage: 0.4 MILLIGRAM, 1D1C
  13. CLONAZEPAM. [Concomitant]
     Active Substance: CLONAZEPAM
     Dosage: 2.5 MILLIGRAM PER MILLILITRE
  14. PARACETAMOL [Concomitant]
     Active Substance: ACETAMINOPHEN
     Dosage: 500 MILLIGRAM
  15. DICLOFENAC SODIUM. [Concomitant]
     Active Substance: DICLOFENAC SODIUM
     Dosage: 50 MILLIGRAM
  16. FENTANYL [FENTANYL CITRATE] [Concomitant]
     Active Substance: FENTANYL CITRATE
     Dosage: 25 UG/HR, 1PLPER3DAYS
  17. FENTANYL [FENTANYL CITRATE] [Concomitant]
     Active Substance: FENTANYL CITRATE
     Dosage: 12 UG/HR,  1PL PER3 DAYS
  18. LISINOPRIL/HYDROCHLOORTHIAZIDE [Concomitant]
     Active Substance: HYDROCHLOROTHIAZIDE\LISINOPRIL
     Dosage: 20/12.5 MG, 1D1T
  19. PREGABALINE [Concomitant]
     Active Substance: PREGABALIN
     Dosage: 150 MILLIGRAM, 2D1C
  20. VASELINE CETOMACROGOL CREAM [Concomitant]
     Dosage: 20 PERCENT
  21. XGEVA [Suspect]
     Active Substance: DENOSUMAB
     Indication: PROPHYLAXIS
     Dosage: 120 MILLIGRAM, Q4WK
     Route: 065
  22. DOLOPHINE [Concomitant]
     Active Substance: METHADONE HYDROCHLORIDE
     Dosage: 5 MILLIGRAM
  23. PARACETAMOL [Concomitant]
     Active Substance: ACETAMINOPHEN
     Dosage: 1000 MILLIGRAM, 3D1T
  24. PANTOPRAZOL [PANTOPRAZOLE] [Concomitant]
     Active Substance: PANTOPRAZOLE
     Dosage: 40 MILLIGRAM, 1D1T

REACTIONS (3)
  - Hospice care [Unknown]
  - Hypotension [Unknown]
  - Spinal cord compression [Unknown]

NARRATIVE: CASE EVENT DATE: 20190606
